FAERS Safety Report 24530383 (Version 3)
Quarter: 2025Q3

REPORT INFORMATION
  Report Type: Spontaneous
  Country: EU (occurrence: EU)
  Receive Date: 20241021
  Receipt Date: 20250809
  Transmission Date: 20251020
  Serious: Yes (Hospitalization, Other)
  Sender: ALEXION PHARMACEUTICALS
  Company Number: EU-BAUSCH-BL-2024-014772

PATIENT
  Age: 72 Year
  Sex: Female

DRUGS (4)
  1. ROSUVASTATIN [Suspect]
     Active Substance: ROSUVASTATIN
     Indication: Low density lipoprotein increased
     Route: 065
     Dates: start: 2014, end: 2016
  2. ROSUVASTATIN [Suspect]
     Active Substance: ROSUVASTATIN
     Route: 065
  3. EZETIMIBE [Concomitant]
     Active Substance: EZETIMIBE
     Indication: Low density lipoprotein increased
     Dates: start: 2014, end: 2016
  4. INCLISIRAN [Concomitant]
     Active Substance: INCLISIRAN

REACTIONS (3)
  - Low density lipoprotein increased [Recovered/Resolved]
  - Treatment noncompliance [Unknown]
  - Drug intolerance [Recovered/Resolved]
